FAERS Safety Report 4303898-0 (Version None)
Quarter: 2004Q1

REPORT INFORMATION
  Report Type: 
  Country: None (occurrence: None)
  Receive Date: 20040225
  Receipt Date: 20040213
  Transmission Date: 20041129
  Serious: Yes (Hospitalization)
  Sender: FDA-Public Use
  Company Number: WAES 0402CHE00023

PATIENT
  Age: 85 Year
  Sex: Female

DRUGS (7)
  1. ACENOCOUMAROL [Suspect]
     Indication: PROPHYLAXIS
     Route: 048
     Dates: end: 20040128
  2. FLUTICASONE PROPIONATE AND SALMETEROL XINAFOATE [Concomitant]
     Route: 055
  3. GINKGO BILOBA EXTRACT [Suspect]
     Route: 048
     Dates: end: 20040130
  4. LANSOPRAZOLE [Concomitant]
     Route: 048
  5. SINGULAIR [Suspect]
     Route: 048
     Dates: end: 20040130
  6. TORSEMIDE [Concomitant]
     Route: 048
  7. VALSARTAN [Concomitant]
     Route: 048

REACTIONS (3)
  - HAEMATOMA [None]
  - HAEMOGLOBIN DECREASED [None]
  - PAIN [None]
